FAERS Safety Report 7735322-X (Version None)
Quarter: 2011Q3

REPORT INFORMATION
  Report Type: 
  Country: None (occurrence: None)
  Receive Date: 20110907
  Receipt Date: 20110829
  Transmission Date: 20111222
  Serious: Yes (Disabling)
  Sender: FDA-Public Use
  Company Number: JP-ASTRAZENECA-2011SE51870

PATIENT
  Age: 36 Year
  Sex: Female

DRUGS (1)
  1. XYLOCAINE [Suspect]
     Dosage: DOSE UNKNOWN
     Route: 065
     Dates: start: 20000301, end: 20000401

REACTIONS (1)
  - MOTOR DYSFUNCTION [None]
